FAERS Safety Report 15598961 (Version 1)
Quarter: 2018Q4

REPORT INFORMATION
  Report Type: Spontaneous
  Country: US (occurrence: US)
  Receive Date: 20181108
  Receipt Date: 20181108
  Transmission Date: 20190205
  Serious: No
  Sender: FDA-Public Use
  Company Number: US-ELI_LILLY_AND_COMPANY-US201810015240

PATIENT
  Age: 45 Year
  Sex: Female

DRUGS (3)
  1. SERTRALINE [Concomitant]
     Active Substance: SERTRALINE HYDROCHLORIDE
     Indication: ANXIETY
     Dosage: 200 MG, DAILY
     Route: 065
  2. BOTOX [Concomitant]
     Active Substance: ONABOTULINUMTOXINA
  3. EMGALITY [Suspect]
     Active Substance: GALCANEZUMAB-GNLM
     Indication: MIGRAINE
     Dosage: 240 MG, SINGLE
     Route: 058
     Dates: start: 20181029

REACTIONS (4)
  - Feeling abnormal [Not Recovered/Not Resolved]
  - Stress [Unknown]
  - Chest discomfort [Not Recovered/Not Resolved]
  - Fatigue [Not Recovered/Not Resolved]

NARRATIVE: CASE EVENT DATE: 20181031
